FAERS Safety Report 10736751 (Version 1)
Quarter: 2015Q1

REPORT INFORMATION
  Report Type: Spontaneous
  Country: US (occurrence: None)
  Receive Date: 20150112
  Receipt Date: 20150112
  Transmission Date: 20150721
  Serious: Yes (Death, Other)
  Sender: FDA-Public Use
  Company Number: 1420372

PATIENT
  Age: 75 Year
  Sex: Male
  Weight: 75.3 kg

DRUGS (2)
  1. ASPIRIN (ASPIRIN) [Concomitant]
     Active Substance: ASPIRIN
  2. ACTIVASE [Suspect]
     Active Substance: ALTEPLASE
     Indication: CEREBROVASCULAR ACCIDENT
     Dosage: NOT OTHERWISE SPECIFIED
     Route: 042
     Dates: start: 20140420, end: 20140420

REACTIONS (3)
  - Cerebral haemorrhage [None]
  - Haemorrhage [None]
  - Cerebrovascular accident [None]

NARRATIVE: CASE EVENT DATE: 20140420
